FAERS Safety Report 16442900 (Version 1)
Quarter: 2019Q2

REPORT INFORMATION
  Report Type: Spontaneous
  Country: CA (occurrence: CA)
  Receive Date: 20190617
  Receipt Date: 20190617
  Transmission Date: 20190711
  Serious: Yes (Other)
  Sender: FDA-Public Use
  Company Number: CA-ALLERGAN-1924955US

PATIENT
  Sex: Female

DRUGS (18)
  1. CLOZARIL [Suspect]
     Active Substance: CLOZAPINE
     Indication: SCHIZOPHRENIA
     Route: 065
  2. OLANZAPINE. [Suspect]
     Active Substance: OLANZAPINE
     Indication: SCHIZOPHRENIA
     Route: 065
  3. FLUPENTIXOL DECANOATE [Suspect]
     Active Substance: FLUPENTIXOL DECANOATE
     Dosage: UNK
     Route: 065
  4. RISPERDAL [Concomitant]
     Active Substance: RISPERIDONE
  5. PALIPERIDONE PALMITATE [Suspect]
     Active Substance: PALIPERIDONE PALMITATE
     Indication: SCHIZOPHRENIA
     Dosage: UNK
     Route: 065
  6. ARIPIPRAZOLE. [Suspect]
     Active Substance: ARIPIPRAZOLE
     Indication: SCHIZOPHRENIA
     Route: 065
  7. RISPERIDONE. [Suspect]
     Active Substance: RISPERIDONE
     Indication: SCHIZOPHRENIA
     Route: 065
  8. ABILIFY [Suspect]
     Active Substance: ARIPIPRAZOLE
     Indication: SCHIZOPHRENIA
     Dosage: 1 DF, QD
     Route: 065
  9. LATUDA [Suspect]
     Active Substance: LURASIDONE HYDROCHLORIDE
     Indication: SCHIZOPHRENIA
     Dosage: 1 DF
     Route: 048
  10. PALIPERIDONE PALMITATE [Suspect]
     Active Substance: PALIPERIDONE PALMITATE
     Dosage: UNK
     Route: 065
  11. ZYPREXA [Suspect]
     Active Substance: OLANZAPINE
     Indication: SCHIZOPHRENIA
     Route: 065
  12. QUETIAPINE FUMARATE. [Suspect]
     Active Substance: QUETIAPINE FUMARATE
     Indication: SCHIZOPHRENIA
     Dosage: UNK
     Route: 065
  13. ZIPRASIDONE HYDROCHLORIDE. [Suspect]
     Active Substance: ZIPRASIDONE HYDROCHLORIDE
     Indication: SCHIZOPHRENIA
     Route: 065
  14. ZUCLOPENTHIXOL [Suspect]
     Active Substance: ZUCLOPENTHIXOL
     Indication: SCHIZOPHRENIA
     Route: 065
  15. ASENAPINE MALEATE - BP [Suspect]
     Active Substance: ASENAPINE MALEATE
     Indication: SCHIZOPHRENIA
     Dosage: UNK
     Route: 065
  16. FLUPENTIXOL DECANOATE [Suspect]
     Active Substance: FLUPENTIXOL DECANOATE
     Indication: SCHIZOPHRENIA
     Dosage: UNK
     Route: 065
  17. QUETIAPINE FUMARATE. [Suspect]
     Active Substance: QUETIAPINE FUMARATE
     Dosage: UNK
     Route: 065
  18. ZUCLOPENTHIXOL HYDROCHLORIDE [Suspect]
     Active Substance: ZUCLOPENTHIXOL HYDROCHLORIDE
     Indication: SCHIZOPHRENIA
     Route: 065

REACTIONS (13)
  - Dyskinesia [Unknown]
  - Disturbance in social behaviour [Unknown]
  - Personality change [Unknown]
  - Condition aggravated [Unknown]
  - Blood prolactin abnormal [Unknown]
  - Suicide attempt [Unknown]
  - Anosognosia [Unknown]
  - Sexual dysfunction [Unknown]
  - Blood glucose increased [Unknown]
  - Dystonia [Unknown]
  - Sedation [Unknown]
  - Metabolic disorder [Unknown]
  - Drug ineffective [Unknown]
